FAERS Safety Report 9387838 (Version 1)
Quarter: 2013Q3

REPORT INFORMATION
  Report Type: Spontaneous
  Country: US (occurrence: US)
  Receive Date: 20130708
  Receipt Date: 20130708
  Transmission Date: 20140515
  Serious: Yes (Hospitalization)
  Sender: FDA-Public Use
  Company Number: US-BAXTER-2013BAX024185

PATIENT
  Age: 50 Year
  Sex: Female

DRUGS (2)
  1. DIANEAL LOW CALCIUM (ULTRABAG) [Suspect]
     Indication: PERITONEAL DIALYSIS
     Route: 033
  2. VALACYCLOVIR [Suspect]
     Indication: HERPES ZOSTER
     Route: 065
     Dates: start: 201306

REACTIONS (6)
  - Herpes zoster [Recovering/Resolving]
  - Incorrect dose administered [Unknown]
  - Diarrhoea [Recovered/Resolved]
  - Dehydration [Recovering/Resolving]
  - Hypotension [Recovering/Resolving]
  - Insomnia [Recovered/Resolved]
